FAERS Safety Report 9521929 (Version 1)
Quarter: 2013Q1

REPORT INFORMATION
  Report Type: Spontaneous
  Country: US (occurrence: None)
  Receive Date: 20130305
  Receipt Date: 20130305
  Transmission Date: 20140127
  Serious: Yes (Other)
  Sender: FDA-Public Use
  Company Number: 156-21880-12072938

PATIENT
  Age: 58 Year
  Sex: Female

DRUGS (8)
  1. REVLIMID (LENALIDOMIDE) (CAPSULES) [Suspect]
     Indication: PLASMA CELL MYELOMA
     Dosage: 25 MG, 14 IN 21 D, PO
     Route: 048
     Dates: start: 20120709, end: 20120709
  2. VELCADE (BORTEZOMIB) [Suspect]
     Dosage: 3.5 MG, INJ
     Dates: start: 20120706
  3. DEXAMETHASONE (DEXAMETHASONE) (TABLETS) [Suspect]
     Route: 048
     Dates: start: 20120706
  4. METOPROLOL (METOPROLOL) (TABLETS) [Concomitant]
  5. BACTRIM (BACTRIM) (TABLETS) [Concomitant]
  6. ASPIRIN (ACETYLSALICYLIC ACID) (TABLETS) [Concomitant]
  7. OMEPRAZOLE (OMEPRAZOLE) (CAPSULES) [Concomitant]
  8. HYDROCODONE/APAP (VICODIN) (TABLETS) [Concomitant]

REACTIONS (6)
  - White blood cell count decreased [None]
  - Haemoglobin decreased [None]
  - Fatigue [None]
  - Platelet count decreased [None]
  - Abdominal distension [None]
  - Chills [None]
